FAERS Safety Report 8219064-2 (Version None)
Quarter: 2012Q1

REPORT INFORMATION
  Report Type: 
  Country: None (occurrence: None)
  Receive Date: 20120319
  Receipt Date: 20120307
  Transmission Date: 20120608
  Serious: Yes (Life-Threatening)
  Sender: FDA-Public Use
  Company Number: IT-BRISTOL-MYERS SQUIBB COMPANY-16453839

PATIENT
  Age: 53 Year
  Sex: Male

DRUGS (3)
  1. FLUOROURACIL [Suspect]
     Indication: RECTAL CANCER
     Dosage: STRENGTH:500MG/10ML FLUOROURACIL TEVA
     Route: 042
     Dates: start: 20120114
  2. ERBITUX [Suspect]
     Indication: RECTAL CANCER
     Route: 042
     Dates: start: 20120114
  3. IRINOTECAN HCL [Suspect]
     Indication: RECTAL CANCER
     Dosage: STRENGTH:20MG/ML
     Route: 042
     Dates: start: 20120114

REACTIONS (1)
  - APNOEA [None]
